FAERS Safety Report 21584209 (Version 1)
Quarter: 2022Q4

REPORT INFORMATION
  Report Type: Spontaneous
  Country: US (occurrence: None)
  Receive Date: 20221110
  Receipt Date: 20221110
  Transmission Date: 20230112
  Serious: No
  Sender: FDA-Public Use
  Company Number: None

PATIENT
  Age: 61 Year
  Sex: Female
  Weight: 91.49 kg

DRUGS (39)
  1. LENALIDOMIDE [Suspect]
     Active Substance: LENALIDOMIDE
     Indication: Plasma cell myeloma
     Dosage: OTHER FREQUENCY : 3W, 1W OFF;?
     Route: 048
  2. ACETAZOLAMIDE [Concomitant]
     Active Substance: ACETAZOLAMIDE
  3. ACETAMINOPHEN [Concomitant]
     Active Substance: ACETAMINOPHEN
  4. ACYCLOVIR [Concomitant]
     Active Substance: ACYCLOVIR
  5. AMMONIUM LACTATE [Concomitant]
     Active Substance: AMMONIUM LACTATE
  6. BRIMONIDINE [Concomitant]
     Active Substance: BRIMONIDINE TARTRATE
  7. CALCIUM [Concomitant]
     Active Substance: CALCIUM
  8. CETIRIZINE HYDROCHLORIDE [Concomitant]
     Active Substance: CETIRIZINE HYDROCHLORIDE
  9. CITALOPRAM [Concomitant]
     Active Substance: CITALOPRAM HYDROBROMIDE
  10. CLOBETASOL [Concomitant]
     Active Substance: CLOBETASOL
  11. CLOTRIMAZOLE [Concomitant]
     Active Substance: CLOTRIMAZOLE
  12. DOCUSATE SODIUM [Concomitant]
     Active Substance: DOCUSATE SODIUM
  13. DORZOALMIDE [Concomitant]
  14. DOXYCYCLINE [Concomitant]
     Active Substance: DOXYCYCLINE
  15. ENOXAPARIN [Concomitant]
     Active Substance: ENOXAPARIN
  16. FERROUS SULFATE [Concomitant]
     Active Substance: FERROUS SULFATE
  17. GABAPENTIN [Concomitant]
     Active Substance: GABAPENTIN
  18. GUAIFENESIN [Concomitant]
     Active Substance: GUAIFENESIN
  19. IBUPROFEN [Concomitant]
     Active Substance: IBUPROFEN
  20. LEVOTHYROXINE [Concomitant]
     Active Substance: LEVOTHYROXINE
  21. LIDOCAINE [Concomitant]
     Active Substance: LIDOCAINE
  22. MAALOX MAX [Concomitant]
     Active Substance: ALUMINUM HYDROXIDE\DIMETHICONE\MAGNESIUM HYDROXIDE
  23. MAGNESIUM OXIDE [Concomitant]
     Active Substance: MAGNESIUM OXIDE
  24. MELATONIN [Concomitant]
     Active Substance: MELATONIN
  25. METHYLPREDNISOLONE [Concomitant]
     Active Substance: METHYLPREDNISOLONE
  26. METOPROLOL SUCCINATE [Concomitant]
     Active Substance: METOPROLOL SUCCINATE
  27. MILK OF MAGNESIA [Concomitant]
     Active Substance: MAGNESIUM HYDROXIDE
  28. VITAMINS [Concomitant]
     Active Substance: VITAMINS
  29. MYRBETRIQ [Concomitant]
     Active Substance: MIRABEGRON
  30. OLOPATADINE [Concomitant]
     Active Substance: OLOPATADINE
  31. PANTOPRAZOLE [Concomitant]
     Active Substance: PANTOPRAZOLE
  32. PILOCARPINE [Concomitant]
     Active Substance: PILOCARPINE
  33. HIGH DENSITY POLYETHYLENE [Concomitant]
     Active Substance: HIGH DENSITY POLYETHYLENE
  34. SIMETHICONE (DIMETHICONE) [Concomitant]
     Active Substance: DIMETHICONE
  35. TAMSULOSIN [Concomitant]
     Active Substance: TAMSULOSIN
  36. TRAVATAN Z [Concomitant]
     Active Substance: TRAVOPROST
  37. TRIPLE ANTIBIOTIC [Concomitant]
  38. VITAMIN D3 [Concomitant]
     Active Substance: CHOLECALCIFEROL
  39. VOLTAREN [Concomitant]
     Active Substance: DICLOFENAC SODIUM

REACTIONS (1)
  - Cerebrovascular accident [None]
